FAERS Safety Report 12464527 (Version 2)
Quarter: 2016Q3

REPORT INFORMATION
  Report Type: Spontaneous
  Country: US (occurrence: US)
  Receive Date: 20160614
  Receipt Date: 20160707
  Transmission Date: 20161109
  Serious: Yes (Hospitalization, Other)
  Sender: FDA-Public Use
  Company Number: US-TEVA-668425USA

PATIENT
  Age: 45 Year
  Sex: Male

DRUGS (6)
  1. DIPHENHYDRAMINE. [Interacting]
     Active Substance: DIPHENHYDRAMINE
  2. AZITHROMYCIN ANHYDROUS. [Interacting]
     Active Substance: AZITHROMYCIN ANHYDROUS
  3. ONDANSETRON [Suspect]
     Active Substance: ONDANSETRON
  4. SERTRALINE [Interacting]
     Active Substance: SERTRALINE HYDROCHLORIDE
  5. FLUOXETINE [Interacting]
     Active Substance: FLUOXETINE HYDROCHLORIDE
  6. METHADONE [Interacting]
     Active Substance: METHADONE HYDROCHLORIDE

REACTIONS (8)
  - Ventricular tachycardia [Unknown]
  - Loss of consciousness [Unknown]
  - Torsade de pointes [Unknown]
  - Medication error [Unknown]
  - Cardiac arrest [Unknown]
  - Drug interaction [Unknown]
  - Intentional product misuse [Unknown]
  - Drug withdrawal syndrome [Unknown]
